FAERS Safety Report 21350096 (Version 1)
Quarter: 2022Q3

REPORT INFORMATION
  Report Type: Spontaneous
  Country: US (occurrence: US)
  Receive Date: 20220919
  Receipt Date: 20220919
  Transmission Date: 20221027
  Serious: No
  Sender: FDA-Public Use
  Company Number: US-KYOWAKIRIN-2022BKK014591

PATIENT

DRUGS (1)
  1. SANCUSO [Suspect]
     Active Substance: GRANISETRON
     Indication: Product used for unknown indication
     Dosage: 3.1 MG, QD
     Route: 061
     Dates: start: 20220823

REACTIONS (7)
  - Insomnia [Unknown]
  - Headache [Unknown]
  - Urticaria [Unknown]
  - Eye movement disorder [Unknown]
  - Fall [Unknown]
  - Balance disorder [Unknown]
  - Vertigo [Unknown]

NARRATIVE: CASE EVENT DATE: 20220915
